FAERS Safety Report 25828898 (Version 3)
Quarter: 2025Q4

REPORT INFORMATION
  Report Type: Report from Study
  Country: JP (occurrence: JP)
  Receive Date: 20250922
  Receipt Date: 20251016
  Transmission Date: 20260117
  Serious: Yes (Other)
  Sender: ASTELLAS
  Company Number: JP-ASTELLAS-2025-AER-051182

PATIENT
  Age: 73 Year
  Sex: Male
  Weight: 54 kg

DRUGS (25)
  1. VYLOY [Suspect]
     Active Substance: ZOLBETUXIMAB-CLZB
     Indication: Gastric cancer
     Route: 065
     Dates: start: 20250221, end: 20250221
  2. CAPECITABINE [Suspect]
     Active Substance: CAPECITABINE
     Indication: Gastric cancer
     Route: 065
     Dates: start: 20250221, end: 20250307
  3. OXALIPLATIN [Suspect]
     Active Substance: OXALIPLATIN
     Indication: Gastric cancer
     Route: 065
     Dates: start: 20250221, end: 20250307
  4. TRIFLURIDINE [Concomitant]
     Active Substance: TRIFLURIDINE
     Indication: Gastric cancer
     Route: 065
  5. PALONOSETRON [Concomitant]
     Active Substance: PALONOSETRON
     Indication: Prophylaxis of nausea and vomiting
     Route: 065
  6. FOSNETUPITANT [Concomitant]
     Active Substance: FOSNETUPITANT
     Indication: Prophylaxis of nausea and vomiting
     Route: 065
  7. DEXAMETHASONE [Concomitant]
     Active Substance: DEXAMETHASONE
     Indication: Prophylaxis of nausea and vomiting
     Route: 065
  8. OLANZAPINE [Concomitant]
     Active Substance: OLANZAPINE
     Indication: Prophylaxis of nausea and vomiting
     Route: 065
  9. LORAZEPAM [Concomitant]
     Active Substance: LORAZEPAM
     Indication: Prophylaxis of nausea and vomiting
     Route: 065
  10. CHLORPHENIRAMINE [Concomitant]
     Active Substance: CHLORPHENIRAMINE
     Indication: Prophylaxis of nausea and vomiting
     Route: 065
  11. MIYA-BM tablet [Concomitant]
     Indication: Diarrhoea
     Route: 048
     Dates: start: 20250221, end: 20250228
  12. METOCLOPRAMIDE [Concomitant]
     Active Substance: METOCLOPRAMIDE
     Indication: Nausea
     Route: 048
     Dates: start: 20250223, end: 20250309
  13. METOCLOPRAMIDE [Concomitant]
     Active Substance: METOCLOPRAMIDE
     Indication: Vomiting
  14. Enevo Combination Enteral Solution [Concomitant]
     Indication: Weight decreased
     Route: 048
     Dates: start: 20250228, end: 20250306
  15. GLUACETO 35 [Concomitant]
     Indication: Vomiting
     Route: 065
     Dates: start: 20250310, end: 20250319
  16. PIPERACILLIN SODIUM\TAZOBACTAM SODIUM [Concomitant]
     Active Substance: PIPERACILLIN SODIUM\TAZOBACTAM SODIUM
     Indication: Pyrexia
     Route: 065
     Dates: start: 20250310, end: 20250313
  17. ASCORBIC ACID [Concomitant]
     Active Substance: ASCORBIC ACID
     Indication: Vomiting
     Route: 050
     Dates: start: 20250311, end: 20250319
  18. ACETAMINOPHEN [Concomitant]
     Active Substance: ACETAMINOPHEN
     Indication: Pyrexia
     Route: 065
     Dates: start: 20250311, end: 20250311
  19. METOCLOPRAMIDE [Concomitant]
     Active Substance: METOCLOPRAMIDE
     Indication: Hiccups
     Route: 065
     Dates: start: 20250312, end: 20250312
  20. LANSOPRAZOLE [Concomitant]
     Active Substance: LANSOPRAZOLE
     Indication: Nausea
     Route: 065
     Dates: start: 20250313, end: 20250319
  21. LANSOPRAZOLE [Concomitant]
     Active Substance: LANSOPRAZOLE
     Indication: Vomiting
  22. AMINO ACIDS\DEXTROSE\ELECTROLYTES NOS\MINERALS\VITAMINS [Concomitant]
     Active Substance: AMINO ACIDS\DEXTROSE\ELECTROLYTES NOS\MINERALS\VITAMINS
     Indication: Weight decreased
     Route: 065
     Dates: start: 20250319, end: 20250321
  23. FUROSEMIDE [Concomitant]
     Active Substance: FUROSEMIDE
     Indication: Oedema
     Route: 065
     Dates: start: 20250319, end: 20250320
  24. GASTER [Concomitant]
     Active Substance: FAMOTIDINE
     Indication: Nausea
     Route: 065
     Dates: start: 20250319, end: 20250523
  25. GASTER [Concomitant]
     Active Substance: FAMOTIDINE
     Indication: Vomiting

REACTIONS (13)
  - Hypokalaemia [Recovering/Resolving]
  - Hyperkalaemia [Not Recovered/Not Resolved]
  - Diarrhoea [Recovering/Resolving]
  - Nausea [Not Recovered/Not Resolved]
  - Weight decreased [Not Recovered/Not Resolved]
  - Decreased appetite [Not Recovered/Not Resolved]
  - Vomiting [Recovering/Resolving]
  - Malaise [Not Recovered/Not Resolved]
  - Hiccups [Recovering/Resolving]
  - Pyrexia [Not Recovered/Not Resolved]
  - Hypoalbuminaemia [Not Recovered/Not Resolved]
  - Oedema [Recovering/Resolving]
  - Anaemia [Not Recovered/Not Resolved]

NARRATIVE: CASE EVENT DATE: 20250221
